FAERS Safety Report 4336349-0 (Version None)
Quarter: 2004Q2

REPORT INFORMATION
  Report Type: 
  Country: None (occurrence: None)
  Receive Date: 20040409
  Receipt Date: 20040409
  Transmission Date: 20050107
  Serious: Yes (Other)
  Sender: FDA-Public Use
  Company Number: None

PATIENT
  Age: 42 Year
  Sex: Male
  Weight: 59.8748 kg

DRUGS (4)
  1. TAXOL [Suspect]
     Indication: GASTRIC CANCER
     Dosage: 60 MG/96 HR X 5 WKS
     Dates: start: 20040322, end: 20040326
  2. TAXOL [Suspect]
     Indication: GASTRIC CANCER
     Dosage: 60 MG/96 HR X 5 WKS
     Dates: start: 20040405, end: 20040408
  3. CISPLATIN [Suspect]
     Dosage: 30MG / M2 WEEKLY X5
     Dates: start: 20040322, end: 20040326
  4. CISPLATIN [Suspect]
     Dosage: 30MG / M2 WEEKLY X5
     Dates: start: 20040405, end: 20040408

REACTIONS (2)
  - ATAXIA [None]
  - SEDATION [None]
